FAERS Safety Report 25686821 (Version 1)
Quarter: 2025Q3

REPORT INFORMATION
  Report Type: Spontaneous
  Country: US (occurrence: US)
  Receive Date: 20250816
  Receipt Date: 20250816
  Transmission Date: 20251021
  Serious: No
  Sender: SANOFI AVENTIS
  Company Number: US-SA-2025SA240434

PATIENT
  Age: 13 Year
  Sex: Female
  Weight: 56.9 kg

DRUGS (1)
  1. DUPIXENT [Suspect]
     Active Substance: DUPILUMAB
     Indication: Dermatitis atopic
     Dosage: 200 MG EVERY OTHER WEEK
     Route: 058

REACTIONS (2)
  - Pruritus [Unknown]
  - Scratch [Unknown]
